FAERS Safety Report 7494713-5 (Version None)
Quarter: 2011Q2

REPORT INFORMATION
  Report Type: 
  Country: None (occurrence: None)
  Receive Date: 20110520
  Receipt Date: 20110512
  Transmission Date: 20111010
  Serious: Yes (Death)
  Sender: FDA-Public Use
  Company Number: GB-GENZYME-CLOF-1001551

PATIENT
  Sex: Male
  Weight: 72.6 kg

DRUGS (16)
  1. COTRIM [Concomitant]
     Dosage: 480 MG, 3X/W (MON-WED-FRI)
     Route: 048
     Dates: start: 20110404, end: 20110404
  2. METOCLOPRAMIDE [Concomitant]
     Indication: PROPHYLAXIS OF NAUSEA AND VOMITING
     Dosage: 10 MG, PRN (2 DOSES TOTAL)
     Route: 042
     Dates: start: 20110325, end: 20110328
  3. PERINDOPRIL ERBUMINE [Concomitant]
     Indication: PRODUCT USED FOR UNKNOWN INDICATION
     Dosage: 2 MG, QD
     Route: 048
     Dates: start: 20110329, end: 20110330
  4. PIPERACILLIN W [Concomitant]
     Indication: INFECTION
     Dosage: 4.5 G, QDS
     Route: 042
     Dates: start: 20110325, end: 20110403
  5. PIPERACILLIN W [Concomitant]
     Dosage: 4.5 G, BID
     Route: 042
     Dates: start: 20110403, end: 20110406
  6. ACYCLOVIR [Concomitant]
     Indication: ANTIVIRAL PROPHYLAXIS
     Dosage: 400 MG, BID
     Route: 048
     Dates: start: 20110324, end: 20110406
  7. CALOGEN [Concomitant]
     Indication: NUTRITIONAL SUPPORT
     Dosage: 30 ML, QDS
     Route: 048
     Dates: start: 20110329, end: 20110406
  8. DIGOXIN [Concomitant]
     Indication: PRODUCT USED FOR UNKNOWN INDICATION
     Dosage: 125 MCG, QD
     Route: 048
     Dates: start: 20110324, end: 20110403
  9. EVOLTRA [Suspect]
     Indication: ACUTE MYELOID LEUKAEMIA
     Dosage: 38 MG, QD
     Route: 065
     Dates: start: 20110325, end: 20110329
  10. COTRIM [Concomitant]
     Indication: ANTIFUNGAL PROPHYLAXIS
     Dosage: 960 MG, 3X/W (MON-WED-FRI)
     Route: 048
     Dates: start: 20110324, end: 20110404
  11. ITRACONAZOLE [Concomitant]
     Indication: PROPHYLAXIS
     Dosage: 400 MG, BID
     Route: 048
     Dates: start: 20110324, end: 20110331
  12. ITRACONAZOLE [Concomitant]
     Dosage: 200 MG, BID
     Route: 048
     Dates: start: 20110401, end: 20110406
  13. CHLORHEXIDINE [Concomitant]
     Indication: PROPHYLAXIS
     Dosage: 10 ML, QDS
     Route: 050
     Dates: start: 20110324, end: 20110406
  14. DOMPERIDONE [Concomitant]
     Indication: PROPHYLAXIS OF NAUSEA AND VOMITING
     Dosage: 20 MG, PRN (3 DOSES TOTAL)
     Route: 048
     Dates: start: 20110326, end: 20110402
  15. FORTIJUICE LIQUID [Concomitant]
     Indication: NUTRITIONAL SUPPORT
     Dosage: 200 ML, QD
     Route: 048
     Dates: start: 20110329, end: 20110406
  16. DIGOXIN [Concomitant]
     Dosage: 62.5 MCG, QD
     Route: 048
     Dates: start: 20110403, end: 20110406

REACTIONS (1)
  - RENAL FAILURE [None]
